FAERS Safety Report 9013576 (Version 1)
Quarter: 2013Q1

REPORT INFORMATION
  Report Type: Spontaneous
  Country: MX (occurrence: MX)
  Receive Date: 20130115
  Receipt Date: 20130115
  Transmission Date: 20140127
  Serious: Yes (Other)
  Sender: FDA-Public Use
  Company Number: PHHY2013MX002944

PATIENT
  Age: 65 Year
  Sex: Female

DRUGS (3)
  1. CO-DIOVAN [Suspect]
     Indication: HYPERTENSION
     Dosage: 1 DF (160/12.5MG) DAILY
     Route: 048
     Dates: start: 201202, end: 201212
  2. ASPIRIN PROTECT [Concomitant]
     Indication: INFARCTION
     Dosage: 1 UNK DAILY
     Dates: start: 201210
  3. HYDROCHLOROTHIAZIDE [Concomitant]
     Indication: BLOOD PRESSURE
     Dosage: 0.5 UKN, DAILY
     Dates: start: 201211

REACTIONS (5)
  - Eye haemorrhage [Recovered/Resolved]
  - Epistaxis [Recovered/Resolved]
  - Hypoaesthesia [Recovered/Resolved]
  - Headache [Recovered/Resolved]
  - Hypertension [Recovered/Resolved]
